FAERS Safety Report 17425188 (Version 1)
Quarter: 2020Q1

REPORT INFORMATION
  Report Type: Spontaneous
  Country: FR (occurrence: FR)
  Receive Date: 20200218
  Receipt Date: 20200218
  Transmission Date: 20200409
  Serious: Yes (Hospitalization)
  Sender: FDA-Public Use
  Company Number: FR-ACCORD-172757

PATIENT
  Age: 70 Year
  Sex: Female
  Weight: 52.5 kg

DRUGS (8)
  1. GANFORT [Concomitant]
     Active Substance: BIMATOPROST\TIMOLOL
     Dosage: STRENGTH-300 MICROGRAMS / ML + 5 MG / ML
  2. CARBOPLATINE ACCORD [Suspect]
     Active Substance: CARBOPLATIN
     Indication: OVARIAN CANCER
     Dosage: STRENGTH- 10 MG/ML
     Route: 041
     Dates: start: 20191227
  3. POLARAMIN [Suspect]
     Active Substance: DEXCHLORPHENIRAMINE MALEATE
     Indication: PREMEDICATION
     Dosage: STRENGTH-5 MG/1 ML,SOLUTION INJECTABLE
     Route: 042
     Dates: start: 20191227
  4. CIMETIDINE ARROW [Suspect]
     Active Substance: CIMETIDINE
     Indication: PREMEDICATION
     Dosage: STRENGTH-200 MG
     Route: 048
     Dates: start: 20191227
  5. PACLITAXEL KABI [Suspect]
     Active Substance: PACLITAXEL
     Indication: OVARIAN CANCER
     Dosage: STRENGTH-6 MG/ML
     Route: 041
     Dates: start: 20191227
  6. METHYLPREDNISOLONE MYLAN [Suspect]
     Active Substance: METHYLPREDNISOLONE
     Indication: PREMEDICATION
     Route: 041
     Dates: start: 20191227, end: 20191229
  7. HYALURONIC ACID [Concomitant]
     Active Substance: HYALURONIC ACID
  8. ONDANSETRON ARROW [Suspect]
     Active Substance: ONDANSETRON
     Indication: PREMEDICATION
     Dosage: STRENGTH- 8 MG
     Route: 048
     Dates: start: 20191227, end: 20191229

REACTIONS (1)
  - Stevens-Johnson syndrome [Recovering/Resolving]

NARRATIVE: CASE EVENT DATE: 20200107
